FAERS Safety Report 5172399-2 (Version None)
Quarter: 2006Q4

REPORT INFORMATION
  Report Type: 
  Country: None (occurrence: None)
  Receive Date: 20061205
  Receipt Date: 20061102
  Transmission Date: 20070319
  Serious: Yes (Other)
  Sender: FDA-Public Use
  Company Number: 2006140414

PATIENT
  Sex: Male

DRUGS (3)
  1. CELEBREX [Suspect]
     Dates: start: 20010406
  2. BEXTRA [Suspect]
     Dates: start: 20030213, end: 20031217
  3. VIOXX [Suspect]
     Dates: start: 20031017

REACTIONS (1)
  - DEEP VEIN THROMBOSIS [None]
